FAERS Safety Report 21886374 (Version 1)
Quarter: 2023Q1

REPORT INFORMATION
  Report Type: Report from Study
  Country: KR (occurrence: KR)
  Receive Date: 20230119
  Receipt Date: 20230119
  Transmission Date: 20230417
  Serious: Yes (Hospitalization)
  Sender: FDA-Public Use
  Company Number: KR-GLAXOSMITHKLINE-KR2022GSK197954

PATIENT

DRUGS (9)
  1. FLUTICASONE FUROATE\UMECLIDINIUM BROMIDE\VILANTEROL TRIFENATATE [Suspect]
     Active Substance: FLUTICASONE FUROATE\UMECLIDINIUM BROMIDE\VILANTEROL TRIFENATATE
     Indication: Chronic obstructive pulmonary disease
     Dosage: UNK, QD
     Route: 055
     Dates: start: 20220209, end: 20220407
  2. FLUTICASONE FUROATE\UMECLIDINIUM BROMIDE\VILANTEROL TRIFENATATE [Suspect]
     Active Substance: FLUTICASONE FUROATE\UMECLIDINIUM BROMIDE\VILANTEROL TRIFENATATE
     Dosage: UNK, QD
     Route: 055
     Dates: start: 20220509
  3. MEGESTROL [Concomitant]
     Active Substance: MEGESTROL
     Indication: Appetite disorder
     Dosage: SINGLR DOSE-1, QD
     Route: 048
     Dates: start: 20220808, end: 20221204
  4. AXID [Concomitant]
     Active Substance: NIZATIDINE
     Indication: Peptic ulcer
     Dosage: SINGLE DOSE-1, BID
     Route: 048
     Dates: start: 20220905
  5. HARNAL [Concomitant]
     Active Substance: TAMSULOSIN HYDROCHLORIDE
     Indication: Benign prostatic hyperplasia
     Dosage: SINGLE DOSE-1, QD
     Route: 048
     Dates: start: 20220509
  6. ONON CAPSULE (PRANLUKAST) [Concomitant]
     Indication: Chronic obstructive pulmonary disease
     Dosage: SINGLE DOSE-1, BID
     Route: 048
     Dates: start: 20220314
  7. ROFLUMILAST [Concomitant]
     Active Substance: ROFLUMILAST
     Indication: Chronic obstructive pulmonary disease
     Dosage: SINGLE DOSE- 1 , BID
     Route: 048
     Dates: start: 20220509
  8. ASIMA TABLET [Concomitant]
     Indication: Chronic obstructive pulmonary disease
     Dosage: SINGLE DOSE- 1, BID
     Route: 048
     Dates: start: 20220222
  9. SOLONDO TABLET [Concomitant]
     Indication: Chronic obstructive pulmonary disease
     Dosage: SINGLE DOSE- 1, QD
     Route: 048
     Dates: start: 20220222

REACTIONS (1)
  - Dyspnoea [Recovering/Resolving]

NARRATIVE: CASE EVENT DATE: 20221215
